FAERS Safety Report 24410364 (Version 1)
Quarter: 2024Q4

REPORT INFORMATION
  Report Type: Spontaneous
  Country: ES (occurrence: ES)
  Receive Date: 20241008
  Receipt Date: 20241008
  Transmission Date: 20250115
  Serious: Yes (Other)
  Sender: RANBAXY
  Company Number: ES-SUN PHARMACEUTICAL INDUSTRIES LTD-2024RR-471707

PATIENT
  Sex: Female

DRUGS (2)
  1. ERTAPENEM [Interacting]
     Active Substance: ERTAPENEM
     Indication: Genitourinary tract infection
     Dosage: UNK
     Route: 040
     Dates: start: 20240615, end: 20240617
  2. VALPROIC ACID [Interacting]
     Active Substance: VALPROIC ACID
     Indication: Epilepsy
     Dosage: UNK
     Route: 048
     Dates: start: 2022

REACTIONS (2)
  - Seizure [Recovered/Resolved]
  - Labelled drug-drug interaction medication error [Recovered/Resolved]

NARRATIVE: CASE EVENT DATE: 20240615
